FAERS Safety Report 8823452 (Version 3)
Quarter: 2013Q2

REPORT INFORMATION
  Report Type: Spontaneous
  Country: US (occurrence: US)
  Receive Date: 20121003
  Receipt Date: 20130510
  Transmission Date: 20140414
  Serious: Yes (Disabling, Other)
  Sender: FDA-Public Use
  Company Number: US-BAYER-2012-101706

PATIENT
  Age: 59 Year
  Sex: Male
  Weight: 99.77 kg

DRUGS (1)
  1. ALEVE CAPLET/TABLET,MIDOL EXTENDED RELIEF CAPLET [Suspect]
     Indication: ARTHRALGIA
     Dosage: 2-3 TABLET, QD
     Route: 048
     Dates: start: 201012, end: 201303

REACTIONS (5)
  - Dyspnoea [Not Recovered/Not Resolved]
  - Pulmonary function test decreased [Not Recovered/Not Resolved]
  - Cough [None]
  - Abdominal pain upper [None]
  - Incorrect drug administration duration [None]
